FAERS Safety Report 15345171 (Version 1)
Quarter: 2018Q3

REPORT INFORMATION
  Report Type: Report from Study
  Country: BR (occurrence: BR)
  Receive Date: 20180903
  Receipt Date: 20180903
  Transmission Date: 20181010
  Serious: Yes (Death, Other)
  Sender: FDA-Public Use
  Company Number: PHHY2018BR081214

PATIENT
  Age: 62 Year
  Sex: Male
  Weight: 82 kg

DRUGS (4)
  1. ISONIAZIDE [Concomitant]
     Active Substance: ISONIAZID
     Indication: ANTIBIOTIC PROPHYLAXIS
     Dosage: 3 DF, QD
     Route: 048
     Dates: start: 201804, end: 20180817
  2. COSENTYX [Suspect]
     Active Substance: SECUKINUMAB
     Indication: RHEUMATOID ARTHRITIS
  3. COSENTYX [Suspect]
     Active Substance: SECUKINUMAB
     Indication: PSORIATIC ARTHROPATHY
     Dosage: 300 MG, QMO
     Route: 058
     Dates: start: 20180607
  4. COSENTYX [Suspect]
     Active Substance: SECUKINUMAB
     Indication: PSORIASIS

REACTIONS (13)
  - Pneumonia [Fatal]
  - Loss of consciousness [Unknown]
  - Malaise [Unknown]
  - Syncope [Unknown]
  - Weight abnormal [Unknown]
  - Respiratory disorder [Unknown]
  - Haemoptysis [Not Recovered/Not Resolved]
  - Cough [Recovering/Resolving]
  - Dyspnoea [Unknown]
  - Pulmonary embolism [Fatal]
  - Respiratory arrest [Fatal]
  - Infection [Unknown]
  - Product use in unapproved indication [Unknown]

NARRATIVE: CASE EVENT DATE: 20180805
